FAERS Safety Report 6160779-8 (Version None)
Quarter: 2009Q2

REPORT INFORMATION
  Report Type: 
  Country: None (occurrence: None)
  Receive Date: 20090420
  Receipt Date: 20090414
  Transmission Date: 20091009
  Serious: Yes (Other)
  Sender: FDA-Public Use
  Company Number: PHHY2009BE14006

PATIENT
  Age: 80 Year
  Sex: Female

DRUGS (1)
  1. RASILEZ [Suspect]
     Route: 048

REACTIONS (3)
  - BLOOD PRESSURE SYSTOLIC INCREASED [None]
  - HYPERTENSION [None]
  - MALAISE [None]
